FAERS Safety Report 12671136 (Version 1)
Quarter: 2016Q3

REPORT INFORMATION
  Report Type: Spontaneous
  Country: AU (occurrence: None)
  Receive Date: 20160819
  Receipt Date: 20160819
  Transmission Date: 20161109
  Serious: Yes (Hospitalization)
  Sender: FDA-Public Use
  Company Number: None

PATIENT
  Age: 27 Year
  Sex: Female
  Weight: 78 kg

DRUGS (1)
  1. MIRENA [Suspect]
     Active Substance: LEVONORGESTREL

REACTIONS (12)
  - Haemorrhage [None]
  - Gait disturbance [None]
  - Dizziness postural [None]
  - Abdominal pain [None]
  - Weight increased [None]
  - Mood swings [None]
  - Lethargy [None]
  - Headache [None]
  - Emotional disorder [None]
  - Migraine [None]
  - Movement disorder [None]
  - Nausea [None]

NARRATIVE: CASE EVENT DATE: 20160127
